FAERS Safety Report 16658535 (Version 1)
Quarter: 2019Q3

REPORT INFORMATION
  Report Type: Spontaneous
  Country: US (occurrence: US)
  Receive Date: 20190801
  Receipt Date: 20190801
  Transmission Date: 20191004
  Serious: No
  Sender: FDA-Public Use
  Company Number: US-009507513-1907USA014990

PATIENT
  Age: 86 Year
  Sex: Female

DRUGS (18)
  1. KEYTRUDA [Suspect]
     Active Substance: PEMBROLIZUMAB
     Indication: MALIGNANT MELANOMA
     Dosage: 200 MILLIGRAM, EVERY 3 WEEKS
     Route: 042
     Dates: start: 20190208, end: 20190725
  2. TYLENOL PM [Concomitant]
     Active Substance: ACETAMINOPHEN\DIPHENHYDRAMINE
     Dosage: EVERY NIGHT
  3. ACETAMINOPHEN (+) BUTALBITAL (+) CAFFEINE [Concomitant]
     Active Substance: ACETAMINOPHEN\BUTALBITAL\CAFFEINE
  4. ASPIRIN. [Concomitant]
     Active Substance: ASPIRIN
  5. MIRTAZAPINE. [Concomitant]
     Active Substance: MIRTAZAPINE
  6. XANAX [Concomitant]
     Active Substance: ALPRAZOLAM
  7. PLAVIX [Concomitant]
     Active Substance: CLOPIDOGREL BISULFATE
  8. CHONDROITIN (+) GLUCOSAMINE [Concomitant]
  9. TOPROL XL [Concomitant]
     Active Substance: METOPROLOL SUCCINATE
  10. ASTELIN [Concomitant]
     Active Substance: AZELASTINE HYDROCHLORIDE
  11. FERROUS SULFATE. [Concomitant]
     Active Substance: FERROUS SULFATE
  12. KLOR-CON [Concomitant]
     Active Substance: POTASSIUM CHLORIDE
  13. ASCORBIC ACID (+) VITAMIN B COMPLEX [Concomitant]
  14. MELATONIN [Concomitant]
     Active Substance: MELATONIN
  15. CELEXA [Concomitant]
     Active Substance: CITALOPRAM HYDROBROMIDE
  16. TYLENOL [Concomitant]
     Active Substance: ACETAMINOPHEN
  17. LASIX [Concomitant]
     Active Substance: FUROSEMIDE
  18. VITAMINS (UNSPECIFIED) [Concomitant]
     Active Substance: VITAMINS

REACTIONS (2)
  - Glycosylated haemoglobin increased [Unknown]
  - Blood glucose increased [Unknown]
